FAERS Safety Report 6060368-X (Version None)
Quarter: 2009Q1

REPORT INFORMATION
  Report Type: 
  Country: None (occurrence: None)
  Receive Date: 20090130
  Receipt Date: 20090130
  Transmission Date: 20090719
  Serious: Yes (Other)
  Sender: FDA-Public Use
  Company Number: None

PATIENT
  Age: 63 Year
  Sex: Female
  Weight: 83.9154 kg

DRUGS (1)
  1. XOLAIR [Suspect]
     Indication: ASTHMA
     Dosage: INJECTION/96401 EVERY 2 WEEKS
     Dates: start: 20070731, end: 20071206

REACTIONS (2)
  - ARTHRITIS [None]
  - ARTHROPATHY [None]
